FAERS Safety Report 25634468 (Version 3)
Quarter: 2025Q3

REPORT INFORMATION
  Report Type: Spontaneous
  Country: US (occurrence: US)
  Receive Date: 20250801
  Receipt Date: 20250830
  Transmission Date: 20251021
  Serious: No
  Sender: AMGEN
  Company Number: US-AMGEN-USASP2025146110

PATIENT
  Age: 62 Year
  Sex: Female
  Weight: 95.692 kg

DRUGS (1)
  1. NEULASTA [Suspect]
     Active Substance: PEGFILGRASTIM
     Indication: Prophylaxis
     Route: 065

REACTIONS (1)
  - Device adhesion issue [Recovered/Resolved]

NARRATIVE: CASE EVENT DATE: 20250708
